FAERS Safety Report 8497968-3 (Version None)
Quarter: 2012Q3

REPORT INFORMATION
  Report Type: 
  Country: None (occurrence: None)
  Receive Date: 20120709
  Receipt Date: 20120615
  Transmission Date: 20120928
  Serious: No
  Sender: FDA-Public Use
  Company Number: US-AMGEN-USASP2012037458

PATIENT
  Sex: Female

DRUGS (1)
  1. ENBREL [Suspect]
     Indication: RHEUMATOID ARTHRITIS
     Dosage: 50 MG, QWK
     Dates: start: 19990101, end: 20111201

REACTIONS (5)
  - COUGH [None]
  - PYREXIA [None]
  - SUBCUTANEOUS ABSCESS [None]
  - NASOPHARYNGITIS [None]
  - URINARY TRACT INFECTION [None]
